FAERS Safety Report 17830790 (Version 1)
Quarter: 2020Q2

REPORT INFORMATION
  Report Type: Spontaneous
  Country: US (occurrence: US)
  Receive Date: 20200527
  Receipt Date: 20200527
  Transmission Date: 20200714
  Serious: No
  Sender: FDA-Public Use
  Company Number: US-NEPHRON STERILE COMPOUNDING CENTER-2084230

PATIENT
  Age: 68 Year
  Sex: Male
  Weight: 101 kg

DRUGS (4)
  1. ZOFRAN [Concomitant]
     Active Substance: ONDANSETRON HYDROCHLORIDE
     Route: 040
     Dates: start: 20200519, end: 20200519
  2. PROPOFOL. [Concomitant]
     Active Substance: PROPOFOL
     Route: 040
     Dates: start: 20200519, end: 20200519
  3. SUCCINYLCHOLINE CHLORIDE. [Suspect]
     Active Substance: SUCCINYLCHOLINE CHLORIDE
     Indication: URETERAL STENT INSERTION
     Route: 040
     Dates: start: 20200519, end: 20200519
  4. LIDOCAINE. [Concomitant]
     Active Substance: LIDOCAINE
     Route: 042
     Dates: start: 20200519, end: 20200519

REACTIONS (1)
  - Drug ineffective [Recovered/Resolved]

NARRATIVE: CASE EVENT DATE: 20200519
